FAERS Safety Report 24089562 (Version 1)
Quarter: 2024Q3

REPORT INFORMATION
  Report Type: Report from Study
  Country: US (occurrence: None)
  Receive Date: 20240715
  Receipt Date: 20240715
  Transmission Date: 20241016
  Serious: Yes (Other)
  Sender: ASTRAZENECA
  Company Number: 2020SE52060

PATIENT
  Sex: Male
  Weight: 50.8 kg

DRUGS (2)
  1. CRESTOR [Suspect]
     Active Substance: ROSUVASTATIN CALCIUM
     Indication: Blood cholesterol increased
     Route: 048
  2. BRILINTA [Suspect]
     Active Substance: TICAGRELOR
     Indication: Cardiac disorder
     Route: 048
     Dates: start: 20200313, end: 20200318

REACTIONS (8)
  - Lung neoplasm malignant [Unknown]
  - Dizziness [Unknown]
  - Arthralgia [Unknown]
  - Disturbance in attention [Unknown]
  - Feeling abnormal [Unknown]
  - Heart rate increased [Unknown]
  - Asthenia [Unknown]
  - Unevaluable event [Unknown]
